FAERS Safety Report 5143710-3 (Version None)
Quarter: 2006Q4

REPORT INFORMATION
  Report Type: 
  Country: None (occurrence: None)
  Receive Date: 20061103
  Receipt Date: 20060609
  Transmission Date: 20070319
  Serious: Yes (Other)
  Sender: FDA-Public Use
  Company Number: GB-ALLERGAN-0601338US

PATIENT
  Age: 82 Year
  Sex: Female

DRUGS (3)
  1. OFLOXACIN UNK [Suspect]
     Indication: ULCERATIVE KERATITIS
     Route: 047
  2. CYCLOPENTOLATE HYDROCHLORIDE [Suspect]
     Indication: ULCERATIVE KERATITIS
     Dosage: UNK, TID
     Route: 047
  3. LATANOPROST [Suspect]
     Indication: GLAUCOMA
     Route: 047

REACTIONS (2)
  - CORNEAL DEPOSITS [None]
  - DRUG INTERACTION [None]
